FAERS Safety Report 23421921 (Version 1)
Quarter: 2024Q1

REPORT INFORMATION
  Report Type: Spontaneous
  Country: None (occurrence: FR)
  Receive Date: 20240119
  Receipt Date: 20240119
  Transmission Date: 20240410
  Serious: Yes (Other)
  Sender: FDA-Public Use
  Company Number: FR-Ascend Therapeutics US, LLC-2151590

PATIENT
  Age: 71 Year
  Sex: Female

DRUGS (4)
  1. ESTROGEL [Suspect]
     Active Substance: ESTRADIOL
     Indication: Hormone replacement therapy
     Route: 003
     Dates: start: 20020107, end: 20240104
  2. ESTRADIOL [Suspect]
     Active Substance: ESTRADIOL
     Route: 003
     Dates: start: 20020107, end: 20240104
  3. DUPHASTON [Suspect]
     Active Substance: DYDROGESTERONE
     Route: 048
     Dates: start: 20020107, end: 20240104
  4. LEVOTHYROXINE SODIUM [Concomitant]
     Active Substance: LEVOTHYROXINE SODIUM
     Route: 048
     Dates: start: 2002

REACTIONS (1)
  - Hemiparesis [Recovered/Resolved with Sequelae]
